FAERS Safety Report 6327368-3 (Version None)
Quarter: 2009Q3

REPORT INFORMATION
  Report Type: 
  Country: None (occurrence: None)
  Receive Date: 20090818
  Receipt Date: 20090422
  Transmission Date: 20100115
  Serious: No
  Sender: FDA-Public Use
  Company Number: WAES 0904USA03607

PATIENT
  Age: 62 Year
  Sex: Female

DRUGS (2)
  1. JANUVIA [Suspect]
     Indication: DIABETES MELLITUS
     Dosage: 100 MG/DAILY/PO
     Route: 048
     Dates: start: 20080401, end: 20090420
  2. SYNTHROID [Concomitant]

REACTIONS (4)
  - BURNING SENSATION [None]
  - ERYTHEMA [None]
  - OEDEMA PERIPHERAL [None]
  - PAIN [None]
